FAERS Safety Report 7969542-6 (Version None)
Quarter: 2011Q4

REPORT INFORMATION
  Report Type: 
  Country: None (occurrence: None)
  Receive Date: 20111212
  Receipt Date: 20111205
  Transmission Date: 20120403
  Serious: No
  Sender: FDA-Public Use
  Company Number: US-PFIZER INC-2011292758

PATIENT
  Sex: Female
  Weight: 83.447 kg

DRUGS (1)
  1. NICOTROL [Suspect]
     Dosage: UNK
     Dates: start: 20111101, end: 20111101

REACTIONS (1)
  - OROPHARYNGEAL PAIN [None]
